FAERS Safety Report 18941287 (Version 2)
Quarter: 2021Q2

REPORT INFORMATION
  Report Type: Report from Study
  Country: DE (occurrence: DE)
  Receive Date: 20210225
  Receipt Date: 20210512
  Transmission Date: 20210717
  Serious: Yes (Hospitalization, Other)
  Sender: FDA-Public Use
  Company Number: DE-TAKEDA-2021TUS010426

PATIENT
  Sex: Male
  Weight: 53 kg

DRUGS (3)
  1. VEDOLIZUMAB [Suspect]
     Active Substance: VEDOLIZUMAB
     Dosage: 300 MILLIGRAM
     Route: 042
     Dates: start: 20200830, end: 20210113
  2. BETNESOL [BETAMETHASONE VALERATE] [Concomitant]
     Active Substance: BETAMETHASONE VALERATE
     Indication: INFLAMMATION
     Dosage: UNK
     Dates: start: 20200717, end: 20200805
  3. XELJANZ [Concomitant]
     Active Substance: TOFACITINIB CITRATE
     Indication: INFLAMMATORY BOWEL DISEASE
     Dosage: 10 MILLIGRAM
     Dates: start: 20201110, end: 20201214

REACTIONS (2)
  - Therapy non-responder [Unknown]
  - Colitis ulcerative [Recovered/Resolved]

NARRATIVE: CASE EVENT DATE: 20210201
